FAERS Safety Report 6260916-0 (Version None)
Quarter: 2009Q3

REPORT INFORMATION
  Report Type: 
  Country: None (occurrence: None)
  Receive Date: 20090709
  Receipt Date: 20071206
  Transmission Date: 20100115
  Serious: Yes (Other)
  Sender: FDA-Public Use
  Company Number: US-ASTRAZENECA-2006UW23378

PATIENT
  Age: 21629 Day
  Sex: Female

DRUGS (23)
  1. SEROQUEL [Suspect]
     Route: 048
  2. REMERON [Concomitant]
     Indication: SLEEP DISORDER
     Route: 048
  3. EFFEXOR XR [Concomitant]
     Indication: DEPRESSION
     Dosage: 150-300 MG
     Route: 048
  4. LAMICTAL [Concomitant]
     Dosage: 175-200 MG
     Route: 048
  5. METFORMIN HCL [Concomitant]
     Dosage: 500 MG -1 GM
     Route: 048
  6. TOPROL-XL [Concomitant]
     Route: 048
  7. LOVASTATIN [Concomitant]
     Dosage: 20-40 MG
     Route: 048
  8. VASOTEC [Concomitant]
     Route: 048
  9. BYETTA [Concomitant]
     Route: 058
  10. PEPCID [Concomitant]
     Route: 048
  11. AXERT [Concomitant]
  12. CRESTOR [Concomitant]
     Route: 048
  13. DUONEB [Concomitant]
     Dosage: 0.5 MG/3 ML
  14. ESTRACE [Concomitant]
     Route: 048
  15. FASTIN [Concomitant]
     Route: 048
  16. PREMPRO [Concomitant]
     Dosage: 0.625-2.5MG, 0.625-5 MG
     Route: 048
  17. SANCTURA [Concomitant]
     Route: 048
  18. VALIUM [Concomitant]
     Route: 048
  19. HYDROXYZINE PAMOATE [Concomitant]
  20. RISPERDAL [Concomitant]
  21. TRAZODONE HCL [Concomitant]
  22. CELEBREX [Concomitant]
     Route: 048
  23. LOPRESSOR [Concomitant]
     Route: 042

REACTIONS (3)
  - DIABETES MELLITUS [None]
  - DIABETIC NEPHROPATHY [None]
  - NEUROPATHY PERIPHERAL [None]
